FAERS Safety Report 6506898-5 (Version None)
Quarter: 2009Q4

REPORT INFORMATION
  Report Type: 
  Country: None (occurrence: None)
  Receive Date: 20091216
  Receipt Date: 20091202
  Transmission Date: 20100525
  Serious: Yes (Other)
  Sender: FDA-Public Use
  Company Number: 233741J09USA

PATIENT
  Age: 56 Year
  Sex: Male

DRUGS (3)
  1. REBIF [Suspect]
     Indication: MULTIPLE SCLEROSIS
     Dosage: 44 MCG, 3 IN 1 WEEKS, SUBCUTANEOUS
     Route: 058
     Dates: start: 20090413, end: 20091125
  2. ANTIHYPERTENSIVES (ANTIHYPERTENSIVES) [Concomitant]
  3. UNSPECIFIED CHOLESTEROL MEDICATION (CHLOESTEROL-  AND TRIGLYCERIDE RED [Concomitant]

REACTIONS (2)
  - RHEUMATOID ARTHRITIS [None]
  - SARCOIDOSIS [None]
